FAERS Safety Report 11292432 (Version 1)
Quarter: 2015Q3

REPORT INFORMATION
  Report Type: Spontaneous
  Country: FR (occurrence: FR)
  Receive Date: 20150722
  Receipt Date: 20150722
  Transmission Date: 20151125
  Serious: Yes (Hospitalization)
  Sender: FDA-Public Use
  Company Number: FR-PFIZER INC-2015238938

PATIENT
  Age: 8 Year
  Sex: Female

DRUGS (5)
  1. DEPAKINE /00228501/ [Concomitant]
     Active Substance: VALPROIC ACID
     Dosage: UNK
     Dates: end: 20150610
  2. DEPAKINE /00228501/ [Concomitant]
     Active Substance: VALPROIC ACID
     Dosage: 30 MG/KG, DAILY
  3. ZARONTIN [Suspect]
     Active Substance: ETHOSUXIMIDE
     Dosage: 18 MG/KG, DAILY
     Dates: start: 20150605
  4. URBANYL [Concomitant]
     Active Substance: CLOBAZAM
     Dosage: UNK
     Dates: start: 201503
  5. ZARONTIN [Suspect]
     Active Substance: ETHOSUXIMIDE
     Dosage: 37 MG/KG, DAILY
     Dates: start: 20150610

REACTIONS (1)
  - Dermatitis bullous [Unknown]

NARRATIVE: CASE EVENT DATE: 20150613
